FAERS Safety Report 9031211 (Version 1)
Quarter: 2013Q1

REPORT INFORMATION
  Report Type: Spontaneous
  Country: US (occurrence: US)
  Receive Date: 20130123
  Receipt Date: 20130123
  Transmission Date: 20140127
  Serious: No
  Sender: FDA-Public Use
  Company Number: US-ASTRAZENECA-2013SE02362

PATIENT
  Age: 83 Year
  Sex: Female
  Weight: 59 kg

DRUGS (3)
  1. SEROQUEL [Suspect]
     Indication: DEMENTIA ALZHEIMER^S TYPE
     Route: 048
  2. NAMENDA [Concomitant]
  3. POTASSIUM [Concomitant]

REACTIONS (6)
  - Feeling jittery [Recovered/Resolved]
  - Abnormal sleep-related event [Recovered/Resolved]
  - Abnormal behaviour [Recovered/Resolved]
  - Sleep talking [Recovered/Resolved]
  - Irritability [Recovered/Resolved]
  - Off label use [Unknown]
